FAERS Safety Report 4820995-1 (Version None)
Quarter: 2005Q4

REPORT INFORMATION
  Report Type: 
  Country: None (occurrence: None)
  Receive Date: 20051104
  Receipt Date: 20051026
  Transmission Date: 20060501
  Serious: Yes (Hospitalization)
  Sender: FDA-Public Use
  Company Number: FR-SANOFI-SYNTHELABO-A02200502854

PATIENT
  Sex: Female
  Weight: 45 kg

DRUGS (2)
  1. NEGRAM POWDER [Suspect]
     Indication: PYELONEPHRITIS
     Route: 048
     Dates: start: 20050608, end: 20050630
  2. NEORAL [Suspect]
     Indication: PROPHYLAXIS
     Route: 048
     Dates: start: 20040315, end: 20050711

REACTIONS (8)
  - DRUG INTERACTION [None]
  - DRUG LEVEL DECREASED [None]
  - HAEMOGLOBIN DECREASED [None]
  - HALLUCINATION [None]
  - HEADACHE [None]
  - NAUSEA [None]
  - TRANSPLANT REJECTION [None]
  - VOMITING [None]
